FAERS Safety Report 7716872-9 (Version None)
Quarter: 2011Q3

REPORT INFORMATION
  Report Type: 
  Country: None (occurrence: None)
  Receive Date: 20110829
  Receipt Date: 20110816
  Transmission Date: 20111222
  Serious: Yes (Hospitalization, Other)
  Sender: FDA-Public Use
  Company Number: US-ELI_LILLY_AND_COMPANY-US201103006932

PATIENT
  Sex: Female

DRUGS (9)
  1. SIMAVASTATIN [Concomitant]
     Dosage: 40 MG, QD
  2. ASPIRIN [Concomitant]
     Dosage: 81 MG, QD
  3. HYDROCODONE BITARTRATE [Concomitant]
     Indication: PAIN
     Dosage: 1 DF, PRN
  4. MORPHINE [Concomitant]
     Indication: PAIN
     Dosage: UNK
     Route: 030
  5. CLOPIDOGREL [Concomitant]
     Dosage: 75 MG, QD
  6. ALPRAZOLAM [Concomitant]
     Indication: ANXIETY
     Dosage: 1 MG, PRN
  7. FORTEO [Suspect]
     Indication: OSTEOPOROSIS
     Dosage: 20 UG, QD
     Route: 065
  8. FORTEO [Suspect]
     Dosage: 20 UG, QD
     Route: 065
  9. ZOFRAN [Concomitant]

REACTIONS (18)
  - CORONARY ARTERY STENOSIS [None]
  - CORONARY ARTERY DISSECTION [None]
  - SOMNOLENCE [None]
  - CORONARY ARTERY OCCLUSION [None]
  - ASTHENIA [None]
  - GASTRIC ULCER [None]
  - CHEST PAIN [None]
  - HYPOTONIA [None]
  - VENTRICULAR HYPOKINESIA [None]
  - TRICUSPID VALVE INCOMPETENCE [None]
  - HYPOMAGNESAEMIA [None]
  - VENTRICULAR EXTRASYSTOLES [None]
  - ARTERIOSCLEROSIS CORONARY ARTERY [None]
  - WEIGHT DECREASED [None]
  - HAEMATOMA [None]
  - ELECTROCARDIOGRAM ST SEGMENT ELEVATION [None]
  - GROIN PAIN [None]
  - DECREASED APPETITE [None]
